FAERS Safety Report 19473804 (Version 5)
Quarter: 2021Q3

REPORT INFORMATION
  Report Type: Spontaneous
  Country: PL (occurrence: PL)
  Receive Date: 20210629
  Receipt Date: 20210715
  Transmission Date: 20211014
  Serious: Yes (Life-Threatening, Hospitalization, Other)
  Sender: FDA-Public Use
  Company Number: PL-MYLANLABS-2021M1038891

PATIENT
  Age: 42 Year
  Sex: Female

DRUGS (22)
  1. VENLAFAXINE [Suspect]
     Active Substance: VENLAFAXINE HYDROCHLORIDE
     Indication: DEPRESSION
  2. OLANZAPINE. [Concomitant]
     Active Substance: OLANZAPINE
     Indication: MOOD SWINGS
  3. VALPROATE [Concomitant]
     Active Substance: VALPROIC ACID
     Indication: MOOD SWINGS
     Dosage: UNK
  4. LEVOMEPROMAZINE [Suspect]
     Active Substance: LEVOMEPROMAZINE
     Dosage: UNK
  5. CARBAMAZEPINE. [Suspect]
     Active Substance: CARBAMAZEPINE
     Indication: BIPOLAR DISORDER
     Dosage: UNK
     Route: 065
  6. VENLAFAXINE [Suspect]
     Active Substance: VENLAFAXINE HYDROCHLORIDE
     Indication: MOOD SWINGS
     Dosage: UNK
  7. OLANZAPINE. [Suspect]
     Active Substance: OLANZAPINE
     Indication: BIPOLAR I DISORDER
     Dosage: UNK
  8. LAMOTRIGINE. [Concomitant]
     Active Substance: LAMOTRIGINE
     Indication: BIPOLAR DISORDER
     Dosage: UNK
     Route: 065
  9. LEVOMEPROMAZINE [Suspect]
     Active Substance: LEVOMEPROMAZINE
     Indication: BIPOLAR DISORDER
     Dosage: 150 MILLIGRAM, QD
     Route: 065
  10. VALPROATE [Suspect]
     Active Substance: VALPROIC ACID
     Dosage: UNK
  11. PROPRANOLOL [Suspect]
     Active Substance: PROPRANOLOL HYDROCHLORIDE
     Indication: BIPOLAR DISORDER
     Dosage: 40 MILLIGRAM, QD
     Route: 065
  12. VALPROIC ACID. [Suspect]
     Active Substance: VALPROIC ACID
     Indication: BIPOLAR DISORDER
     Dosage: 1500 MILLIGRAM, QD
     Route: 065
  13. VALPROIC ACID. [Suspect]
     Active Substance: VALPROIC ACID
     Dosage: 225 MILLIGRAM, QD (225 MILLIGRAM, ONCE A DAY)
     Route: 065
  14. LITHIUM. [Suspect]
     Active Substance: LITHIUM
     Indication: BIPOLAR DISORDER
     Dosage: UNK
  15. LAMOTRIGINE. [Concomitant]
     Active Substance: LAMOTRIGINE
     Indication: PERSONALITY DISORDER
  16. VENLAFAXINE [Suspect]
     Active Substance: VENLAFAXINE HYDROCHLORIDE
     Indication: ANTIDEPRESSANT THERAPY
     Dosage: DOSE OF VENLAFAXINE WAS CONSISTENTLY INCREASED
     Route: 065
  17. VENLAFAXINE [Suspect]
     Active Substance: VENLAFAXINE HYDROCHLORIDE
     Indication: BIPOLAR I DISORDER
     Dosage: 225 MILLIGRAM, QD
     Route: 065
  18. LAMOTRIGINE. [Suspect]
     Active Substance: LAMOTRIGINE
     Indication: PRODUCT USED FOR UNKNOWN INDICATION
     Dosage: UNK
  19. OLANZAPINE. [Suspect]
     Active Substance: OLANZAPINE
     Indication: BIPOLAR DISORDER
     Dosage: 10 MILLIGRAM, QD
     Route: 065
  20. VALPROATE [Suspect]
     Active Substance: VALPROIC ACID
     Indication: BIPOLAR I DISORDER
     Dosage: 1500 MILLIGRAM (225 MG/DAY)
  21. VALPROIC ACID. [Suspect]
     Active Substance: VALPROIC ACID
     Dosage: UNK
     Route: 065
  22. OLANZAPINE. [Concomitant]
     Active Substance: OLANZAPINE
     Indication: BIPOLAR I DISORDER
     Dosage: 10 MILLIGRAM, QD

REACTIONS (6)
  - Suicidal ideation [Recovered/Resolved]
  - Drug ineffective [Unknown]
  - Suicide attempt [Unknown]
  - Mood swings [Recovering/Resolving]
  - Therapeutic product effect incomplete [Unknown]
  - Depressed mood [Recovered/Resolved]
